FAERS Safety Report 9405017 (Version 2)
Quarter: 2014Q4

REPORT INFORMATION
  Report Type: Spontaneous
  Country: US (occurrence: US)
  Receive Date: 20130717
  Receipt Date: 20141205
  Transmission Date: 20150529
  Serious: Yes (Other)
  Sender: FDA-Public Use
  Company Number: US-BRISTOL-MYERS SQUIBB COMPANY-18798660

PATIENT
  Age: 79 Year
  Sex: Male
  Weight: 90.7 kg

DRUGS (11)
  1. METAMUCIL [Concomitant]
     Active Substance: PLANTAGO SEED
  2. TRAMADOL [Concomitant]
     Active Substance: TRAMADOL
  3. PREDNISONE. [Concomitant]
     Active Substance: PREDNISONE
  4. ALIGN [Concomitant]
     Active Substance: BIFIDOBACTERIUM LONGUM SUBSP. INFANTIS
  5. EQUALACTIN [Concomitant]
  6. SIMVASTATIN. [Concomitant]
     Active Substance: SIMVASTATIN
  7. CLOPIDOGREL BISULFATE. [Concomitant]
     Active Substance: CLOPIDOGREL BISULFATE
  8. YERVOY [Suspect]
     Active Substance: IPILIMUMAB
     Indication: MALIGNANT MELANOMA
     Dosage: LAST DOSE: 19MAR2013
     Route: 042
     Dates: start: 20130108, end: 20130319
  9. ALLOPURINOL. [Concomitant]
     Active Substance: ALLOPURINOL
  10. MIRALAX [Concomitant]
     Active Substance: POLYETHYLENE GLYCOL 3350
  11. CELEBREX [Concomitant]
     Active Substance: CELECOXIB

REACTIONS (6)
  - Malignant neoplasm progression [Unknown]
  - Tooth infection [Unknown]
  - Musculoskeletal pain [Not Recovered/Not Resolved]
  - Muscular weakness [Unknown]
  - Rash pruritic [Recovering/Resolving]
  - Arthritis [Unknown]

NARRATIVE: CASE EVENT DATE: 2013
